FAERS Safety Report 19894018 (Version 2)
Quarter: 2021Q4

REPORT INFORMATION
  Report Type: Spontaneous
  Country: FR (occurrence: FR)
  Receive Date: 20210929
  Receipt Date: 20211027
  Transmission Date: 20220303
  Serious: Yes (Hospitalization)
  Sender: FDA-Public Use
  Company Number: FR-GSKCCFEMEA-CASE-01300170_AE-49254

PATIENT
  Sex: Male

DRUGS (4)
  1. PAROXETINE HYDROCHLORIDE [Interacting]
     Active Substance: PAROXETINE HYDROCHLORIDE
     Indication: Product used for unknown indication
     Dosage: UNK
     Route: 065
     Dates: start: 2010
  2. PAROXETINE HYDROCHLORIDE [Interacting]
     Active Substance: PAROXETINE HYDROCHLORIDE
     Indication: Anxiety
     Dosage: UNK
     Route: 065
     Dates: start: 202010
  3. LORAZEPAM [Interacting]
     Active Substance: LORAZEPAM
     Indication: Product used for unknown indication
     Dosage: UNK (3-0-1 SCHEME, REDUCING THE DOSE GRADUALLY TO HALF TABLET LESS/WEEK)
     Route: 065
     Dates: start: 202010
  4. LORAZEPAM [Interacting]
     Active Substance: LORAZEPAM
     Indication: Anxiety

REACTIONS (3)
  - Hospitalisation [Unknown]
  - Drug interaction [Unknown]
  - Therapeutic product effect incomplete [Unknown]
